FAERS Safety Report 23993838 (Version 1)
Quarter: 2024Q2

REPORT INFORMATION
  Report Type: Spontaneous
  Country: US (occurrence: None)
  Receive Date: 20240618
  Receipt Date: 20240618
  Transmission Date: 20240715
  Serious: Yes (Death)
  Sender: FDA-Public Use
  Company Number: None

PATIENT
  Age: 93 Year
  Sex: Male
  Weight: 95.85 kg

DRUGS (6)
  1. SUGAMMADEX [Suspect]
     Active Substance: SUGAMMADEX
     Indication: Anaesthesia reversal
     Dosage: 200 MG ONCE INTRAVENOUS?
     Route: 042
     Dates: start: 20240613, end: 20240613
  2. PROPOFOL [Concomitant]
     Dates: start: 20240613, end: 20240613
  3. PHENYLEPHRINE [Concomitant]
     Active Substance: PHENYLEPHRINE HYDROCHLORIDE
     Dates: start: 20240613, end: 20240613
  4. LIDOCAINE [Concomitant]
     Active Substance: LIDOCAINE
     Dates: start: 20240613, end: 20240613
  5. ROCURONIUM [Concomitant]
     Active Substance: ROCURONIUM BROMIDE
     Dates: start: 20240613, end: 20240613
  6. FENTANYL [Concomitant]
     Active Substance: FENTANYL\FENTANYL CITRATE
     Dates: start: 20240613, end: 20240613

REACTIONS (7)
  - Urinary tract infection [None]
  - Fall [None]
  - Rectal haemorrhage [None]
  - Haemoglobin decreased [None]
  - Bradycardia [None]
  - Pulseless electrical activity [None]
  - Ventricular fibrillation [None]

NARRATIVE: CASE EVENT DATE: 20240613
